FAERS Safety Report 5603320-8 (Version None)
Quarter: 2008Q1

REPORT INFORMATION
  Report Type: 
  Country: None (occurrence: None)
  Receive Date: 20080122
  Receipt Date: 20080109
  Transmission Date: 20080703
  Serious: Yes (Death)
  Sender: FDA-Public Use
  Company Number: US022062

PATIENT

DRUGS (2)
  1. TRISENOX [Suspect]
     Indication: ACUTE PROMYELOCYTIC LEUKAEMIA
     Dosage: QD INTRAVENOUS DRIP
     Route: 041
  2. TRETINOIN [Concomitant]

REACTIONS (3)
  - CONDITION AGGRAVATED [None]
  - LIVER DISORDER [None]
  - LUNG DISORDER [None]
